FAERS Safety Report 14432503 (Version 4)
Quarter: 2018Q2

REPORT INFORMATION
  Report Type: Report from Study
  Country: CO (occurrence: CO)
  Receive Date: 20180124
  Receipt Date: 20180403
  Transmission Date: 20180711
  Serious: Yes (Hospitalization, Other)
  Sender: FDA-Public Use
  Company Number: CO-JNJFOC-20180114310

PATIENT
  Age: 48 Year
  Sex: Female
  Weight: 87 kg

DRUGS (2)
  1. RISPERDAL CONSTA [Suspect]
     Active Substance: RISPERIDONE
     Indication: SCHIZOPHRENIA
     Route: 030
     Dates: start: 20171227
  2. RISPERDAL CONSTA [Suspect]
     Active Substance: RISPERIDONE
     Indication: SCHIZOPHRENIA
     Route: 030
     Dates: start: 20180207

REACTIONS (7)
  - Drug dose omission [Unknown]
  - Aphasia [Not Recovered/Not Resolved]
  - Fall [Unknown]
  - Dizziness [Recovering/Resolving]
  - Upper limb fracture [Recovering/Resolving]
  - Syncope [Not Recovered/Not Resolved]
  - Restlessness [Unknown]

NARRATIVE: CASE EVENT DATE: 201801
